FAERS Safety Report 8880542 (Version 1)
Quarter: 2012Q4

REPORT INFORMATION
  Report Type: 
  Country: BE (occurrence: BE)
  Receive Date: 20121101
  Receipt Date: 20121101
  Transmission Date: 20130627
  Serious: Yes (Other)
  Sender: FDA-Public Use
  Company Number: BE-ASTRAZENECA-2012SE81896

PATIENT
  Sex: Male

DRUGS (3)
  1. BRILIQUE [Suspect]
     Route: 048
     Dates: start: 201210
  2. ACETYLSALICYLIC ACID [Suspect]
     Route: 065
  3. ACE INHIBITORS [Suspect]
     Route: 065

REACTIONS (1)
  - Angioedema [Unknown]
